FAERS Safety Report 7039878-4 (Version None)
Quarter: 2010Q3

REPORT INFORMATION
  Report Type: 
  Country: None (occurrence: None)
  Receive Date: 20100929
  Receipt Date: 20100610
  Transmission Date: 20110219
  Serious: Yes (Other)
  Sender: FDA-Public Use
  Company Number: US-WYE-H15624510

PATIENT
  Age: 60 Year
  Sex: Female
  Weight: 71.18 kg

DRUGS (4)
  1. PRISTIQ [Suspect]
     Indication: DEPRESSION
     Dosage: ^LOW DOSE^
     Dates: start: 20100101, end: 20100101
  2. PRISTIQ [Suspect]
     Dosage: 1.2 100 MG 1X PER 1 DAY
     Dates: start: 20100101, end: 20100401
  3. PRISTIQ [Suspect]
     Dosage: 1.3 50 MG 1X PER 1 DAY
     Dates: start: 20100101, end: 20100101
  4. LOVASTATIN [Concomitant]

REACTIONS (1)
  - NAUSEA [None]
